FAERS Safety Report 21615250 (Version 2)
Quarter: 2022Q4

REPORT INFORMATION
  Report Type: Spontaneous
  Country: US (occurrence: None)
  Receive Date: 20221118
  Receipt Date: 20221228
  Transmission Date: 20230113
  Serious: No
  Sender: FDA-Public Use
  Company Number: 2022A352875

PATIENT
  Age: 68 Year
  Sex: Female
  Weight: 97.5 kg

DRUGS (1)
  1. FASENRA [Suspect]
     Active Substance: BENRALIZUMAB
     Indication: Asthma
     Dosage: 30MG/ML EVERY EIGHT WEEKS
     Route: 058
     Dates: start: 202111

REACTIONS (1)
  - Blood immunoglobulin E increased [Unknown]

NARRATIVE: CASE EVENT DATE: 20220801
